FAERS Safety Report 12474326 (Version 1)
Quarter: 2016Q2

REPORT INFORMATION
  Report Type: Spontaneous
  Country: US (occurrence: None)
  Receive Date: 20160616
  Receipt Date: 20160616
  Transmission Date: 20160815
  Serious: No
  Sender: FDA-Public Use
  Company Number: None

PATIENT
  Sex: Male

DRUGS (4)
  1. INVOKANA [Suspect]
     Active Substance: CANAGLIFLOZIN
  2. TOUJEO [Suspect]
     Active Substance: INSULIN GLARGINE
  3. GLYBURIDE. [Suspect]
     Active Substance: GLYBURIDE
  4. METFORMIN [Suspect]
     Active Substance: METFORMIN HYDROCHLORIDE

REACTIONS (3)
  - Fatigue [None]
  - Peripheral swelling [None]
  - No therapeutic response [None]
